FAERS Safety Report 6611309-5 (Version None)
Quarter: 2010Q1

REPORT INFORMATION
  Report Type: 
  Country: None (occurrence: None)
  Receive Date: 20100301
  Receipt Date: 20100301
  Transmission Date: 20100710
  Serious: Yes (Other)
  Sender: FDA-Public Use
  Company Number: None

PATIENT
  Age: 65 Year
  Sex: Female
  Weight: 65.318 kg

DRUGS (1)
  1. AZITHROMYCIN [Suspect]
     Indication: SINUSITIS
     Dosage: 2 TABLETS TO START DAY 1 - 1 TAB DAILY PO
     Route: 048
     Dates: start: 20100117, end: 20100118

REACTIONS (1)
  - TINNITUS [None]
